FAERS Safety Report 6560356-0 (Version None)
Quarter: 2010Q1

REPORT INFORMATION
  Report Type: 
  Country: None (occurrence: None)
  Receive Date: 20100129
  Receipt Date: 20090924
  Transmission Date: 20100710
  Serious: No
  Sender: FDA-Public Use
  Company Number: US-ABBOTT-09P-163-0599208-00

PATIENT
  Sex: Female
  Weight: 102.15 kg

DRUGS (8)
  1. HUMIRA [Suspect]
     Indication: RHEUMATOID ARTHRITIS
     Route: 058
     Dates: start: 20090501, end: 20090901
  2. SYNTHROID [Concomitant]
     Indication: HYPOTHYROIDISM
  3. ZOLOFT [Concomitant]
     Indication: DEPRESSION
  4. PREDNISONE [Concomitant]
     Indication: DRUG USE FOR UNKNOWN INDICATION
  5. PROVIGIL [Concomitant]
     Indication: FATIGUE
     Dosage: 100-200 MG DAILY
  6. MOBIC [Concomitant]
     Indication: DRUG USE FOR UNKNOWN INDICATION
     Dosage: 1-2 DAILY
  7. NORTRIPTYLINE HCL [Concomitant]
     Indication: DRUG USE FOR UNKNOWN INDICATION
  8. DARVOCET [Concomitant]
     Indication: DRUG USE FOR UNKNOWN INDICATION
     Dosage: PRN

REACTIONS (1)
  - CELLULITIS [None]
